FAERS Safety Report 24966323 (Version 1)
Quarter: 2025Q1

REPORT INFORMATION
  Report Type: Spontaneous
  Country: GB (occurrence: GB)
  Receive Date: 20250213
  Receipt Date: 20250213
  Transmission Date: 20250409
  Serious: Yes (Other)
  Sender: TORRENT PHARMA INC.
  Company Number: None

PATIENT
  Sex: Female

DRUGS (1)
  1. QUETIAPINE [Suspect]
     Active Substance: QUETIAPINE
     Indication: Product used for unknown indication
     Route: 065

REACTIONS (6)
  - Vomiting [Unknown]
  - Dysstasia [Unknown]
  - Tremor [Unknown]
  - Insomnia [Unknown]
  - Feeding disorder [Unknown]
  - Suicidal ideation [Unknown]
